FAERS Safety Report 21126217 (Version 1)
Quarter: 2022Q3

REPORT INFORMATION
  Report Type: Report from Study
  Country: US (occurrence: US)
  Receive Date: 20220725
  Receipt Date: 20220725
  Transmission Date: 20221026
  Serious: Yes (Hospitalization, Other)
  Sender: FDA-Public Use
  Company Number: US-BAYER-2022A098293

PATIENT
  Age: 70 Year
  Sex: Female
  Weight: 68.027 kg

DRUGS (4)
  1. ADEMPAS [Suspect]
     Active Substance: RIOCIGUAT
     Indication: Pulmonary arterial hypertension
     Dosage: UNK
     Dates: start: 20180402
  2. ADEMPAS [Suspect]
     Active Substance: RIOCIGUAT
     Indication: Pulmonary arterial hypertension
     Dosage: 2.5 MG, TID
     Route: 048
  3. WARFARIN [Concomitant]
     Active Substance: WARFARIN
  4. OPSUMIT [Concomitant]
     Active Substance: MACITENTAN

REACTIONS (7)
  - Bowel obstruction surgery [None]
  - Bowel obstruction surgery [None]
  - Bowel obstruction surgery [None]
  - Intestinal obstruction [None]
  - Colostomy [None]
  - Feeding disorder [None]
  - Fluid intake reduced [None]

NARRATIVE: CASE EVENT DATE: 20220712
